FAERS Safety Report 21538943 (Version 1)
Quarter: 2022Q4

REPORT INFORMATION
  Report Type: Spontaneous
  Country: CN (occurrence: CN)
  Receive Date: 20221102
  Receipt Date: 20221102
  Transmission Date: 20230113
  Serious: Yes (Other)
  Sender: FDA-Public Use
  Company Number: CN-SUN PHARMACEUTICAL INDUSTRIES LTD-2022R1-361440

PATIENT
  Age: 52 Year
  Sex: Female

DRUGS (4)
  1. METHOTREXATE [Suspect]
     Active Substance: METHOTREXATE
     Indication: Keratoacanthoma
     Dosage: 10 MILLIGRAM, WEEKLY
     Route: 065
  2. ACITRETIN [Suspect]
     Active Substance: ACITRETIN
     Indication: Keratoacanthoma
     Dosage: 1 MILLIGRAM/KILOGRAM
     Route: 048
  3. ACITRETIN [Suspect]
     Active Substance: ACITRETIN
     Dosage: 0.5 MILLIGRAM/KILOGRAM
     Route: 048
  4. CYCLOPHOSPHAMIDE [Suspect]
     Active Substance: CYCLOPHOSPHAMIDE
     Indication: Keratoacanthoma
     Dosage: 1 GRAM, MONTHLY
     Route: 065

REACTIONS (1)
  - Disease progression [Unknown]
